FAERS Safety Report 18746858 (Version 1)
Quarter: 2021Q1

REPORT INFORMATION
  Report Type: Spontaneous
  Country: US (occurrence: US)
  Receive Date: 20210115
  Receipt Date: 20210115
  Transmission Date: 20210419
  Serious: No
  Sender: FDA-Public Use
  Company Number: US-PARI RESPIRATORY EQUIPMENT, INC.-2020PAR00008

PATIENT
  Sex: Female
  Weight: 18.91 kg

DRUGS (19)
  1. DIFLUCAN [Concomitant]
     Active Substance: FLUCONAZOLE
  2. MIRALAX [Concomitant]
     Active Substance: POLYETHYLENE GLYCOL 3350
  3. IPRATROPIUM?ALBUTEROL [Concomitant]
     Active Substance: ALBUTEROL\IPRATROPIUM
  4. VITAMIN D?400 [Concomitant]
  5. PULMOZYME [Concomitant]
     Active Substance: DORNASE ALFA
  6. TOBRAMYCIN?DEXAMETHASONE [Concomitant]
     Active Substance: DEXAMETHASONE\TOBRAMYCIN
  7. HYDROCORTISONE?ALOE [Concomitant]
  8. KALYDECO [Concomitant]
     Active Substance: IVACAFTOR
  9. CYPROHEPTADINE HCL [Concomitant]
     Active Substance: CYPROHEPTADINE HYDROCHLORIDE
  10. SOLU?CORTEF [Concomitant]
     Active Substance: HYDROCORTISONE SODIUM SUCCINATE
  11. SALINE [Concomitant]
     Active Substance: SODIUM CHLORIDE
  12. NASONEX [Concomitant]
     Active Substance: MOMETASONE FUROATE
  13. SINGULAIR [Concomitant]
     Active Substance: MONTELUKAST SODIUM
  14. ALLEGRA?D [Concomitant]
     Active Substance: FEXOFENADINE HYDROCHLORIDE\PSEUDOEPHEDRINE HYDROCHLORIDE
  15. AQUADEKS [Concomitant]
     Active Substance: MINERALS\VITAMINS
  16. KITABIS PAK [Suspect]
     Active Substance: TOBRAMYCIN
     Indication: CYSTIC FIBROSIS
     Dosage: 300 MG, 2X/DAY (FOR 28 DAYS ON THEN 28 DAYS OFF)
     Route: 055
  17. BUDESONIDE. [Concomitant]
     Active Substance: BUDESONIDE
  18. AZITHROMYCIN ANHYDROUS. [Concomitant]
     Active Substance: AZITHROMYCIN ANHYDROUS
  19. ZENPEP [Concomitant]
     Active Substance: PANCRELIPASE AMYLASE\PANCRELIPASE LIPASE\PANCRELIPASE PROTEASE

REACTIONS (2)
  - Infection [Unknown]
  - Off label use [Not Recovered/Not Resolved]
